FAERS Safety Report 20442541 (Version 1)
Quarter: 2022Q1

REPORT INFORMATION
  Report Type: Report from Study
  Country: US (occurrence: US)
  Receive Date: 20220208
  Receipt Date: 20220208
  Transmission Date: 20220424
  Serious: Yes (Other)
  Sender: FDA-Public Use
  Company Number: US-KYOWAKIRIN-2022BKK001485

PATIENT

DRUGS (2)
  1. CRYSVITA [Suspect]
     Active Substance: BUROSUMAB-TWZA
     Indication: Hereditary hypophosphataemic rickets
     Dosage: 60 MG (COMBINED WITH 10 MG OF CRYSVITA STRENGTH 10 MG/ML TO ACHIEVE A TOTAL DOSE OF 70 MG), EVERY 4
     Route: 058
     Dates: start: 20210521
  2. CRYSVITA [Suspect]
     Active Substance: BUROSUMAB-TWZA
     Indication: Hereditary hypophosphataemic rickets
     Dosage: 10 MG (COMBINED WITH 60 MG OF CRYSVITA STRENGTH 30 MG/ML TO ACHIEVE A TOTAL DOSE OF 70 MG), EVERY 4
     Route: 058
     Dates: start: 20210521

REACTIONS (2)
  - Fall [Unknown]
  - Lower limb fracture [Unknown]

NARRATIVE: CASE EVENT DATE: 20220117
